FAERS Safety Report 10495255 (Version 3)
Quarter: 2014Q4

REPORT INFORMATION
  Report Type: Spontaneous
  Country: US (occurrence: US)
  Receive Date: 20141003
  Receipt Date: 20141118
  Transmission Date: 20150528
  Serious: Yes (Other)
  Sender: FDA-Public Use
  Company Number: US-TEVA-512714USA

PATIENT
  Age: 59 Year
  Sex: Female

DRUGS (5)
  1. ALENDRONATE SODIUM. [Concomitant]
     Active Substance: ALENDRONATE SODIUM
  2. ATORVASTATIN [Concomitant]
     Active Substance: ATORVASTATIN
  3. COPAXONE [Suspect]
     Active Substance: GLATIRAMER ACETATE
     Indication: MULTIPLE SCLEROSIS
     Route: 058
     Dates: start: 2014, end: 20140926
  4. ESTRADIOL W/NORETHISTERONE [Concomitant]
  5. ROPINIROLE. [Concomitant]
     Active Substance: ROPINIROLE

REACTIONS (2)
  - Drug ineffective [Recovered/Resolved]
  - Multiple sclerosis [Unknown]

NARRATIVE: CASE EVENT DATE: 20140926
